FAERS Safety Report 6784895-2 (Version None)
Quarter: 2010Q2

REPORT INFORMATION
  Report Type: 
  Country: None (occurrence: None)
  Receive Date: 20100622
  Receipt Date: 20100610
  Transmission Date: 20101027
  Serious: Yes (Hospitalization)
  Sender: FDA-Public Use
  Company Number: CA-ELI_LILLY_AND_COMPANY-CA201005000711

PATIENT
  Age: 38 Year
  Sex: Male

DRUGS (2)
  1. CIALIS [Suspect]
     Dosage: 20 MG, UNK
     Dates: start: 20100401
  2. TESTIM [Concomitant]

REACTIONS (7)
  - ABNORMAL SENSATION IN EYE [None]
  - ANGIOPATHY [None]
  - BURNING SENSATION [None]
  - EAR PAIN [None]
  - EYE PAIN [None]
  - HEADACHE [None]
  - OEDEMA PERIPHERAL [None]
